FAERS Safety Report 9625055 (Version 1)
Quarter: 2013Q4

REPORT INFORMATION
  Report Type: Report from Study
  Country: GB (occurrence: GB)
  Receive Date: 20131016
  Receipt Date: 20131016
  Transmission Date: 20140711
  Serious: Yes (Hospitalization)
  Sender: FDA-Public Use
  Company Number: GB-AMGEN-GBRCT2013072474

PATIENT
  Age: 75 Year
  Sex: Female

DRUGS (2)
  1. ETANERCEPT [Suspect]
     Indication: RHEUMATOID ARTHRITIS
     Dosage: 25 MG, UNK
     Route: 065
     Dates: start: 20060715, end: 20130515
  2. METHOTREXATE SODIUM [Concomitant]
     Dosage: UNK
     Dates: start: 200503

REACTIONS (1)
  - Squamous cell carcinoma [Unknown]
